FAERS Safety Report 24627605 (Version 2)
Quarter: 2025Q3

REPORT INFORMATION
  Report Type: Spontaneous
  Country: CA (occurrence: CA)
  Receive Date: 20241116
  Receipt Date: 20250802
  Transmission Date: 20251020
  Serious: Yes (Other)
  Sender: ALEXION PHARMACEUTICALS
  Company Number: CA-AstraZeneca-CH-00745747AP

PATIENT
  Sex: Female

DRUGS (1)
  1. SYMBICORT [Suspect]
     Active Substance: BUDESONIDE\FORMOTEROL FUMARATE DIHYDRATE

REACTIONS (7)
  - Asphyxia [Unknown]
  - Tremor [Unknown]
  - Dizziness [Unknown]
  - Dysgeusia [Unknown]
  - Agitation [Unknown]
  - Device delivery system issue [Unknown]
  - Device breakage [Unknown]
